FAERS Safety Report 5584308-2 (Version None)
Quarter: 2008Q1

REPORT INFORMATION
  Report Type: 
  Country: None (occurrence: None)
  Receive Date: 20080108
  Receipt Date: 20071227
  Transmission Date: 20080703
  Serious: Yes (Hospitalization)
  Sender: FDA-Public Use
  Company Number: JP-BAYER-200710870BYL

PATIENT
  Age: 74 Year
  Sex: Male
  Weight: 51 kg

DRUGS (12)
  1. ASPIRIN [Suspect]
     Indication: CEREBRAL INFARCTION
     Dosage: TOTAL DAILY DOSE: 100 MG  UNIT DOSE: 100 MG
     Route: 048
     Dates: start: 20070815, end: 20070927
  2. SUNRYTHM [Suspect]
     Indication: SICK SINUS SYNDROME
     Route: 048
     Dates: start: 20070419, end: 20070927
  3. DOGMATYL [Suspect]
     Indication: GASTRITIS
     Route: 048
     Dates: start: 20070717, end: 20071018
  4. DEPAS [Suspect]
     Indication: DEPRESSION
     Route: 048
     Dates: start: 20070712, end: 20070926
  5. AMOXAN [Suspect]
     Indication: DEPRESSION
     Route: 048
     Dates: start: 20070815, end: 20070927
  6. SEDIEL [Suspect]
     Indication: DEPRESSION
     Route: 048
     Dates: start: 20070815, end: 20070927
  7. TOFRANIL [Suspect]
     Route: 048
  8. TENORMIN [Suspect]
     Indication: HYPERTENSION
     Route: 048
     Dates: start: 20061130, end: 20070926
  9. GASTER [Concomitant]
     Route: 065
  10. MUCOSTA [Concomitant]
     Route: 048
  11. MAGMITT [Concomitant]
     Route: 048
  12. MICARDIS [Concomitant]
     Route: 048

REACTIONS (1)
  - LIVER DISORDER [None]
